FAERS Safety Report 5843427-3 (Version None)
Quarter: 2008Q3

REPORT INFORMATION
  Report Type: 
  Country: None (occurrence: None)
  Receive Date: 20080813
  Receipt Date: 20080808
  Transmission Date: 20090109
  Serious: Yes (Other)
  Sender: FDA-Public Use
  Company Number: D0058335A

PATIENT
  Age: 28 Year
  Sex: Female

DRUGS (2)
  1. CEFUHEXAL [Suspect]
     Indication: TONSILLITIS
     Dosage: 500MG PER DAY
     Route: 048
     Dates: start: 20080722, end: 20080724
  2. CONTRACEPTIVE [Concomitant]
     Route: 065

REACTIONS (8)
  - DIZZINESS [None]
  - DYSPNOEA [None]
  - GENERALISED ERYTHEMA [None]
  - HYPERSENSITIVITY [None]
  - PROTEINURIA [None]
  - PRURITUS [None]
  - RENAL DISORDER [None]
  - URTICARIA [None]
